FAERS Safety Report 6438295-5 (Version None)
Quarter: 2009Q4

REPORT INFORMATION
  Report Type: 
  Country: None (occurrence: None)
  Receive Date: 20091112
  Receipt Date: 20091023
  Transmission Date: 20100525
  Serious: Yes (Other)
  Sender: FDA-Public Use
  Company Number: JP-JNJFOC-20091008919

PATIENT
  Sex: Female

DRUGS (2)
  1. CRAVIT [Suspect]
     Indication: SINUSITIS
     Route: 048
  2. EXPECTORANT [Concomitant]
     Route: 065

REACTIONS (1)
  - DRUG ERUPTION [None]
